FAERS Safety Report 9887489 (Version 3)
Quarter: 2014Q1

REPORT INFORMATION
  Report Type: Report from Study
  Country: IT (occurrence: IT)
  Receive Date: 20140211
  Receipt Date: 20140304
  Transmission Date: 20141002
  Serious: Yes (Other)
  Sender: FDA-Public Use
  Company Number: IT-ROCHE-1179404

PATIENT
  Age: 56 Year
  Sex: Male

DRUGS (3)
  1. VEMURAFENIB [Suspect]
     Indication: METASTATIC MALIGNANT MELANOMA
     Route: 048
     Dates: start: 20121129
  2. FUROSEMIDE [Concomitant]
     Indication: POLYURIA
     Route: 048
     Dates: start: 20121128
  3. LANSOPRAZOLE [Concomitant]
     Indication: PROPHYLAXIS
     Route: 048

REACTIONS (2)
  - Disease progression [Unknown]
  - Rash [Recovered/Resolved]
